FAERS Safety Report 25739185 (Version 1)
Quarter: 2025Q3

REPORT INFORMATION
  Report Type: Spontaneous
  Country: US (occurrence: US)
  Receive Date: 20250829
  Receipt Date: 20250829
  Transmission Date: 20251020
  Serious: No
  Sender: CIPLA
  Company Number: US-CIPLA LTD.-2024US10815

PATIENT

DRUGS (1)
  1. ALENDRONATE [Suspect]
     Active Substance: ALENDRONATE SODIUM
     Indication: Bone density abnormal
     Route: 065
     Dates: start: 2022

REACTIONS (3)
  - Wrong technique in product usage process [Unknown]
  - Product blister packaging issue [Unknown]
  - Product packaging difficult to open [Unknown]
